FAERS Safety Report 8896911 (Version 1)
Quarter: 2012Q4

REPORT INFORMATION
  Report Type: 
  Country: US (occurrence: US)
  Receive Date: 20121108
  Receipt Date: 20121108
  Transmission Date: 20130627
  Serious: No
  Sender: FDA-Public Use
  Company Number: US-AMGEN-USASP2012028291

PATIENT
  Age: 73 Year
  Sex: Female
  Weight: 49.43 kg

DRUGS (13)
  1. ENBREL [Suspect]
     Indication: RHEUMATOID ARTHRITIS
     Dosage: 50 mg, qwk
     Route: 058
  2. CELEBREX [Concomitant]
     Dosage: 200 mg, UNK
  3. ARAVA [Concomitant]
     Dosage: UNK
  4. PREDNISONE [Concomitant]
     Dosage: 1 mg, UNK
  5. LIPITOR [Concomitant]
     Dosage: 10 mg, UNK
  6. NEURONTIN [Concomitant]
     Dosage: 100 mg, UNK
  7. CYMBALTA [Concomitant]
     Dosage: 20 mg, UNK
  8. LOTENSIN                           /00498401/ [Concomitant]
     Dosage: 10 mg, UNK
  9. SYNTHROID [Concomitant]
     Dosage: 25 mug, UNK
  10. PRILOSEC                           /00661201/ [Concomitant]
     Dosage: 10 mg, UNK
  11. CALCIUM [Concomitant]
     Dosage: UNK
  12. LASIX                              /00032601/ [Concomitant]
     Dosage: 20 mg, UNK
  13. TALACEN [Concomitant]
     Dosage: UNK

REACTIONS (1)
  - Oedema peripheral [Unknown]
